FAERS Safety Report 9910866 (Version 1)
Quarter: 2014Q1

REPORT INFORMATION
  Report Type: Spontaneous
  Country: US (occurrence: US)
  Receive Date: 20140219
  Receipt Date: 20140219
  Transmission Date: 20141002
  Serious: Yes (Other)
  Sender: FDA-Public Use
  Company Number: US-BAYER-2014-025101

PATIENT
  Age: 74 Year
  Sex: Female
  Weight: 68.03 kg

DRUGS (9)
  1. ALKA-SELTZER PLUS SEVERE COUGH AND COLD DAY + NIGHT (DAY) [Suspect]
     Indication: NASOPHARYNGITIS
     Dosage: 1 DF, ONCE
     Route: 048
     Dates: start: 20140210, end: 20140210
  2. ALKA-SELTZER PLUS SEVERE COUGH AND COLD DAY + NIGHT [Suspect]
     Indication: NASOPHARYNGITIS
     Dosage: 1 DF, ONCE
     Route: 048
     Dates: start: 20140210, end: 20140210
  3. CRESTOR [Concomitant]
  4. FISH OIL [Concomitant]
  5. CALCIUM [Concomitant]
  6. TUMERIC [Concomitant]
  7. VITAMIN D3 [Concomitant]
  8. GEODON [Concomitant]
  9. CLONAZEPAM [Concomitant]

REACTIONS (1)
  - Choking [Recovered/Resolved]
